FAERS Safety Report 23134323 (Version 15)
Quarter: 2025Q2

REPORT INFORMATION
  Report Type: Report from Study
  Country: US (occurrence: US)
  Receive Date: 20231101
  Receipt Date: 20250428
  Transmission Date: 20250717
  Serious: Yes (Other)
  Sender: NOVARTIS
  Company Number: US-002147023-NVSC2023US232215

PATIENT
  Sex: Female

DRUGS (1)
  1. KESIMPTA [Suspect]
     Active Substance: OFATUMUMAB
     Indication: Relapsing multiple sclerosis
     Route: 065
     Dates: start: 20230824

REACTIONS (17)
  - Delirium [Unknown]
  - Multiple sclerosis relapse [Unknown]
  - Brain fog [Unknown]
  - Temperature intolerance [Unknown]
  - Road traffic accident [Unknown]
  - Headache [Unknown]
  - Bradyphrenia [Unknown]
  - Fatigue [Unknown]
  - Musculoskeletal stiffness [Unknown]
  - Muscle tightness [Unknown]
  - Sluggishness [Unknown]
  - Pain in extremity [Unknown]
  - Dysstasia [Unknown]
  - Dizziness [Unknown]
  - Pain [Unknown]
  - Feeling abnormal [Unknown]
  - Poor venous access [Unknown]
